FAERS Safety Report 6356534-6 (Version None)
Quarter: 2009Q3

REPORT INFORMATION
  Report Type: 
  Country: None (occurrence: None)
  Receive Date: 20090915
  Receipt Date: 20090909
  Transmission Date: 20100115
  Serious: Yes (Other)
  Sender: FDA-Public Use
  Company Number: US-AVENTIS-200918064US

PATIENT
  Sex: Female

DRUGS (6)
  1. KETEK [Suspect]
     Dosage: DOSE: UNK
  2. AZATHIOPRINE [Concomitant]
     Route: 048
  3. PREDNISOLONE SODIUM PHOSPHATE [Concomitant]
     Indication: POLYARTHRITIS
     Route: 048
     Dates: start: 20071001
  4. PANTOPRAZOLE SODIUM [Concomitant]
     Indication: GASTROOESOPHAGEAL REFLUX DISEASE
     Route: 048
  5. SPIRONOLACTONE [Concomitant]
     Indication: PROPHYLAXIS
     Route: 048
  6. HUMIRA [Concomitant]
     Indication: POLYARTHRITIS
     Route: 058

REACTIONS (2)
  - DRUG HYPERSENSITIVITY [None]
  - HEPATIC FAILURE [None]
